FAERS Safety Report 23979645 (Version 2)
Quarter: 2025Q3

REPORT INFORMATION
  Report Type: Spontaneous
  Country: US (occurrence: US)
  Receive Date: 20240616
  Receipt Date: 20250919
  Transmission Date: 20251020
  Serious: No
  Sender: SANOFI AVENTIS
  Company Number: US-SA-SAC20240613000793

PATIENT
  Age: 39 Year
  Sex: Female
  Weight: 80.2 kg

DRUGS (11)
  1. DUPIXENT [Suspect]
     Active Substance: DUPILUMAB
     Indication: Nasal polyps
     Dosage: 300 MG, QOW
     Route: 058
  2. DUPIXENT [Suspect]
     Active Substance: DUPILUMAB
     Indication: Asthma
  3. MIDODRINE HYDROCHLORIDE [Concomitant]
     Active Substance: MIDODRINE HYDROCHLORIDE
  4. MAGNESIUM CITRATE [Concomitant]
     Active Substance: MAGNESIUM CITRATE
  5. GABAPENTIN [Concomitant]
     Active Substance: GABAPENTIN
  6. ESTRADIOL [Concomitant]
     Active Substance: ESTRADIOL
  7. SUMATRIPTAN SUCCINATE [Concomitant]
     Active Substance: SUMATRIPTAN SUCCINATE
  8. VITAMIN D3 [Concomitant]
     Active Substance: CHOLECALCIFEROL
  9. LYSINE [Concomitant]
     Active Substance: LYSINE
  10. VALACYCLOVIR [Concomitant]
     Active Substance: VALACYCLOVIR HYDROCHLORIDE
  11. TYLENOL EXTRA STRENGTH [Concomitant]
     Active Substance: ACETAMINOPHEN

REACTIONS (17)
  - Endometriosis [Not Recovered/Not Resolved]
  - Neuralgia [Unknown]
  - Orthostatic hypotension [Unknown]
  - Autonomic nervous system imbalance [Unknown]
  - Skin irritation [Unknown]
  - Illness [Unknown]
  - Cough [Unknown]
  - Upper-airway cough syndrome [Unknown]
  - Pain in extremity [Unknown]
  - Arthralgia [Unknown]
  - Tooth fracture [Recovered/Resolved]
  - Hyperaesthesia teeth [Unknown]
  - Nasopharyngitis [Unknown]
  - Toothache [Unknown]
  - Dizziness [Unknown]
  - Back pain [Unknown]
  - Drug interaction [Unknown]

NARRATIVE: CASE EVENT DATE: 20240516
